FAERS Safety Report 19799769 (Version 1)
Quarter: 2021Q3

REPORT INFORMATION
  Report Type: Spontaneous
  Country: GB (occurrence: GB)
  Receive Date: 20210907
  Receipt Date: 20210907
  Transmission Date: 20211014
  Serious: Yes (Other)
  Sender: FDA-Public Use
  Company Number: GB-ASSERTIO THERAPEUTICS, INC.-GB-2021AST000161

PATIENT

DRUGS (1)
  1. INDOMETHACIN SUPPOSITORIES [Suspect]
     Active Substance: INDOMETHACIN
     Indication: PROLONGED PREGNANCY
     Dosage: UNK

REACTIONS (1)
  - Ductus arteriosus stenosis foetal [Unknown]
